FAERS Safety Report 5871104-1 (Version None)
Quarter: 2008Q3

REPORT INFORMATION
  Report Type: 
  Country: None (occurrence: None)
  Receive Date: 20080904
  Receipt Date: 20080901
  Transmission Date: 20090109
  Serious: Yes (Hospitalization, Other)
  Sender: FDA-Public Use
  Company Number: JP-PFIZER INC-2008063724

PATIENT
  Sex: Female
  Weight: 34 kg

DRUGS (6)
  1. CABASER [Suspect]
     Indication: PARKINSON'S DISEASE
     Route: 048
  2. EC DOPARL [Concomitant]
     Route: 048
  3. DEPAS [Concomitant]
     Route: 048
  4. ERSIBON [Concomitant]
     Route: 048
  5. MUCOSTA [Concomitant]
     Route: 048
  6. RIZE [Concomitant]
     Route: 048

REACTIONS (2)
  - LYMPHOMA [None]
  - PLEURAL EFFUSION [None]
